FAERS Safety Report 7599892-7 (Version None)
Quarter: 2011Q3

REPORT INFORMATION
  Report Type: 
  Country: None (occurrence: None)
  Receive Date: 20110711
  Receipt Date: 20110704
  Transmission Date: 20111222
  Serious: Yes (Hospitalization, Other)
  Sender: FDA-Public Use
  Company Number: JP-CEPHALON-2011002902

PATIENT
  Age: 73 Year
  Sex: Male

DRUGS (7)
  1. PREDNISOLONE [Suspect]
     Route: 048
     Dates: start: 20110406, end: 20110410
  2. SULFAMETHOXAZOLE AND TRIMETHOPRIM [Concomitant]
     Dates: start: 20110316
  3. SODIUM GUALENATE [Concomitant]
     Dates: start: 20110316
  4. FAMOTIDINE [Concomitant]
     Dates: start: 20110316
  5. FLUCONAZOLE [Concomitant]
     Dates: start: 20110316
  6. PREDNISOLONE [Suspect]
     Route: 048
     Dates: start: 20110316, end: 20110320
  7. BENDAMUSTINE HCL [Suspect]
     Indication: MANTLE CELL LYMPHOMA
     Route: 042
     Dates: start: 20110502, end: 20110503

REACTIONS (2)
  - VENOUS THROMBOSIS [None]
  - PULMONARY EMBOLISM [None]
